FAERS Safety Report 10736672 (Version 2)
Quarter: 2015Q1

REPORT INFORMATION
  Report Type: Spontaneous
  Country: CN (occurrence: None)
  Receive Date: 20150122
  Receipt Date: 20150202
  Transmission Date: 20150721
  Serious: Yes (Hospitalization, Disabling, Other)
  Sender: FDA-Public Use
  Company Number: 2015SEB00004

PATIENT
  Age: 75 Year
  Sex: Female

DRUGS (1)
  1. MIACALCIC [Suspect]
     Active Substance: CALCITONIN SALMON
     Indication: BONE PAIN
     Dosage: 1 DOSAGE UNITS, 3X/WEEK, NASAL
     Route: 045

REACTIONS (9)
  - Muscle tightness [None]
  - Bone pain [None]
  - Cerebellar atrophy [None]
  - Disease progression [None]
  - Treatment noncompliance [None]
  - Off label use [None]
  - Parkinson^s disease [None]
  - Urinary incontinence [None]
  - Activities of daily living impaired [None]
